FAERS Safety Report 12190187 (Version 1)
Quarter: 2016Q1

REPORT INFORMATION
  Report Type: Spontaneous
  Country: US (occurrence: None)
  Receive Date: 20160317
  Receipt Date: 20160317
  Transmission Date: 20160526
  Serious: No
  Sender: FDA-Public Use
  Company Number: None

PATIENT
  Age: 60 Year
  Sex: Female

DRUGS (2)
  1. INVOKANA [Suspect]
     Active Substance: CANAGLIFLOZIN
  2. HUMALOG [Suspect]
     Active Substance: INSULIN LISPRO

REACTIONS (7)
  - Weight increased [None]
  - Knee arthroplasty [None]
  - Blood glucose fluctuation [None]
  - Scoliosis [None]
  - Back pain [None]
  - Spinal column stenosis [None]
  - Fibromyalgia [None]
